FAERS Safety Report 24466836 (Version 1)
Quarter: 2024Q4

REPORT INFORMATION
  Report Type: Report from Study
  Country: US (occurrence: US)
  Receive Date: 20241018
  Receipt Date: 20241018
  Transmission Date: 20250115
  Serious: No
  Sender: ROCHE
  Company Number: US-ROCHE-3549534

PATIENT
  Age: 75 Year
  Sex: Male

DRUGS (15)
  1. XOLAIR [Suspect]
     Active Substance: OMALIZUMAB
     Indication: Asthma
     Dosage: DATE OF TREATMENT: 13/JUL/2023?ANTICIPATED DATE OF TREATMENT REPORTED ON 27/JUL/2023
     Route: 058
     Dates: start: 20230403, end: 20240403
  2. XOLAIR [Suspect]
     Active Substance: OMALIZUMAB
     Indication: Asthma
  3. XOLAIR [Suspect]
     Active Substance: OMALIZUMAB
     Indication: Asthma
  4. ALBUTEROL [Concomitant]
     Active Substance: ALBUTEROL
  5. ASPIRIN [Concomitant]
     Active Substance: ASPIRIN
  6. ATORVASTATIN [Concomitant]
     Active Substance: ATORVASTATIN
  7. CETIRIZINE HYDROCHLORIDE [Concomitant]
     Active Substance: CETIRIZINE HYDROCHLORIDE
  8. CLOPIDOGREL [Concomitant]
     Active Substance: CLOPIDOGREL BISULFATE
  9. EPIPEN [Concomitant]
     Active Substance: EPINEPHRINE
  10. FINASTERIDE [Concomitant]
     Active Substance: FINASTERIDE
  11. MOMETASONE [Concomitant]
     Active Substance: MOMETASONE
  12. NIACIN [Concomitant]
     Active Substance: NIACIN
  13. PANTOPRAZOLE [Concomitant]
     Active Substance: PANTOPRAZOLE
  14. RAMIPRIL [Concomitant]
     Active Substance: RAMIPRIL
  15. TAMSULOSIN [Concomitant]
     Active Substance: TAMSULOSIN

REACTIONS (5)
  - Gastrooesophageal reflux disease [Unknown]
  - Erectile dysfunction [Unknown]
  - Prostatic specific antigen increased [Unknown]
  - Benign prostatic hyperplasia [Unknown]
  - Urine flow decreased [Unknown]
